FAERS Safety Report 8569338 (Version 2)
Quarter: 2014Q1

REPORT INFORMATION
  Report Type: Spontaneous
  Country: US (occurrence: None)
  Receive Date: 20120323
  Receipt Date: 20130305
  Transmission Date: 20141002
  Serious: Yes (Other)
  Sender: FDA-Public Use
  Company Number: 163-21880-11111538

PATIENT
  Age: 82 Year
  Sex: Female
  Weight: 76.2 kg

DRUGS (1)
  1. REVLIMID (LENALIDOMIDE) ( 15 MILLIGRAM, CAPSULES) [Suspect]
     Indication: PLASMA CELL MYELOMA
     Dosage: 15 MG, 1 IN 1 D, PO
     Route: 048
     Dates: start: 200903

REACTIONS (2)
  - Neutropenia [None]
  - Diarrhoea [None]
